FAERS Safety Report 13526367 (Version 1)
Quarter: 2017Q2

REPORT INFORMATION
  Report Type: Spontaneous
  Country: GB (occurrence: GB)
  Receive Date: 20170509
  Receipt Date: 20170509
  Transmission Date: 20170830
  Serious: Yes (Other)
  Sender: FDA-Public Use
  Company Number: GB-SUN PHARMACEUTICAL INDUSTRIES LTD-2017R1-136297

PATIENT
  Age: 59 Year
  Sex: Male

DRUGS (1)
  1. MINOCYCLINE [Suspect]
     Active Substance: MINOCYCLINE\MINOCYCLINE HYDROCHLORIDE
     Indication: DERMATITIS ACNEIFORM
     Dosage: 200 MG, DAILY
     Route: 065

REACTIONS (4)
  - Oral pigmentation [Unknown]
  - Skin discolouration [Unknown]
  - Scleral pigmentation [Unknown]
  - Ichthyosis [Unknown]
